FAERS Safety Report 19752745 (Version 2)
Quarter: 2023Q4

REPORT INFORMATION
  Report Type: Other
  Country: DE (occurrence: None)
  Receive Date: 20210827
  Receipt Date: 20231127
  Transmission Date: 20240109
  Serious: Yes (Other)
  Sender: FDA-Public Use
  Company Number: DE-SAPTALIS PHARMACEUTICALS,LLC-000107

PATIENT
  Age: 37 Year
  Sex: Female

DRUGS (2)
  1. TRIAMCINOLONE [Suspect]
     Active Substance: TRIAMCINOLONE
     Indication: Macular oedema
     Route: 031
     Dates: start: 201808
  2. ILUVIEN [Suspect]
     Active Substance: FLUOCINOLONE ACETONIDE
     Indication: Radiation retinopathy
     Route: 031
     Dates: start: 201810

REACTIONS (3)
  - Radiation retinopathy [Recovering/Resolving]
  - Drug resistance [Unknown]
  - Visual field defect [Recovering/Resolving]
